FAERS Safety Report 6987721-1 (Version None)
Quarter: 2010Q3

REPORT INFORMATION
  Report Type: 
  Country: None (occurrence: None)
  Receive Date: 20100916
  Receipt Date: 20100906
  Transmission Date: 20110219
  Serious: Yes (Other)
  Sender: FDA-Public Use
  Company Number: DK-GENZYME-CLOF-1001123

PATIENT
  Sex: Male

DRUGS (6)
  1. EVOLTRA [Suspect]
     Indication: ACUTE MYELOID LEUKAEMIA
     Dosage: 42 MG, QDX5
     Route: 042
     Dates: start: 20100604, end: 20100608
  2. EVOLTRA [Suspect]
     Dosage: 30 MG, QDX5
     Route: 042
     Dates: start: 20100823, end: 20100827
  3. FLUCONAZOLE [Concomitant]
     Indication: PRODUCT USED FOR UNKNOWN INDICATION
     Dosage: 400 MG, QD
     Route: 065
     Dates: start: 20100625, end: 20100709
  4. TAZOCIN [Concomitant]
     Indication: PRODUCT USED FOR UNKNOWN INDICATION
     Dosage: 4 G, QID
     Route: 065
     Dates: start: 20100625, end: 20100702
  5. HEXAMYCIN [Concomitant]
     Indication: PRODUCT USED FOR UNKNOWN INDICATION
     Dosage: 360 MG, QD
     Route: 065
     Dates: start: 20100625, end: 20100702
  6. DICILLIN [Concomitant]
     Indication: PRODUCT USED FOR UNKNOWN INDICATION
     Dosage: 500 MG, TID
     Route: 065
     Dates: start: 20100709, end: 20100716

REACTIONS (2)
  - BONE MARROW FAILURE [None]
  - NEUTROPENIA [None]
